FAERS Safety Report 9146524 (Version 1)
Quarter: 2013Q1

REPORT INFORMATION
  Report Type: Spontaneous
  Country: JP (occurrence: JP)
  Receive Date: 20130307
  Receipt Date: 20130307
  Transmission Date: 20140127
  Serious: Yes (Hospitalization)
  Sender: FDA-Public Use
  Company Number: JP-PFIZER INC-2013039434

PATIENT
  Age: 88 Year
  Sex: Male

DRUGS (14)
  1. XALATAN [Suspect]
     Dosage: 1 DROP DAILY
     Route: 047
  2. SELBEX [Concomitant]
     Dosage: 150 MG DAILY
     Route: 048
  3. JUVELA [Concomitant]
     Dosage: 300 MG DAILY
     Route: 048
  4. SERMION [Concomitant]
     Dosage: 15 MG DAILY
     Route: 048
  5. METHYCOBAL [Concomitant]
     Dosage: 1500 UG DAILY
     Route: 048
  6. OPALMON [Concomitant]
     Dosage: 15 UG DAILY
     Route: 048
  7. ANPLAG [Concomitant]
     Dosage: 300 MG DAILY
     Route: 048
  8. BAYASPIRIN [Concomitant]
     Dosage: 1 TABLET, EVERY MORNING
     Route: 048
  9. NORVASC [Concomitant]
     Dosage: 5 MG DAILY
     Route: 048
  10. ZYLORIC [Concomitant]
     Dosage: UNK
     Route: 048
  11. GASTER D [Concomitant]
     Dosage: UNK
     Route: 048
  12. BUP-4 [Concomitant]
     Dosage: 2 TABLETS DAILY
     Route: 048
  13. URSO [Concomitant]
     Dosage: 3 TABLETS DAILY
     Route: 048
  14. CRAVIT [Concomitant]
     Dosage: UNK
     Route: 047

REACTIONS (1)
  - Cholecystitis [Recovered/Resolved]
